FAERS Safety Report 7117842-4 (Version None)
Quarter: 2010Q4

REPORT INFORMATION
  Report Type: 
  Country: None (occurrence: None)
  Receive Date: 20101118
  Receipt Date: 20101118
  Transmission Date: 20110411
  Serious: Yes (Other)
  Sender: FDA-Public Use
  Company Number: None

PATIENT
  Age: 54 Year
  Sex: Male
  Weight: 104.7809 kg

DRUGS (1)
  1. NAPROXEN [Suspect]
     Indication: ARTHRALGIA
     Dosage: ONE TWICE A DAY PO
     Route: 048
     Dates: start: 20101112, end: 20101113

REACTIONS (2)
  - ABORTION INDUCED [None]
  - EYE DISORDER [None]
